FAERS Safety Report 6636350-8 (Version None)
Quarter: 2010Q1

REPORT INFORMATION
  Report Type: 
  Country: None (occurrence: None)
  Receive Date: 20100316
  Receipt Date: 20100315
  Transmission Date: 20100710
  Serious: Yes (Hospitalization)
  Sender: FDA-Public Use
  Company Number: US-ABBOTT-10P-163-0630044-00

PATIENT
  Sex: Female
  Weight: 77.18 kg

DRUGS (7)
  1. HUMIRA [Suspect]
     Indication: CROHN'S DISEASE
     Dates: start: 20080101, end: 20090101
  2. HUMIRA [Suspect]
     Dates: start: 20100201
  3. CIMZIA [Suspect]
     Indication: INTESTINAL OBSTRUCTION
     Dosage: UNKNOWN
     Dates: start: 20080101
  4. CIMZIA [Suspect]
     Indication: INTESTINAL STENOSIS
  5. PROGRAF [Suspect]
     Indication: INTESTINAL OBSTRUCTION
     Dates: start: 20080101
  6. PROGRAF [Suspect]
     Indication: INTESTINAL STENOSIS
  7. RESCUE INHALER [Concomitant]
     Indication: ASTHMA
     Route: 055

REACTIONS (6)
  - GASTROINTESTINAL PAIN [None]
  - HYPOPHAGIA [None]
  - INTESTINAL OBSTRUCTION [None]
  - INTESTINAL STENOSIS [None]
  - NAUSEA [None]
  - VOMITING [None]
